FAERS Safety Report 22108795 (Version 2)
Quarter: 2023Q1

REPORT INFORMATION
  Report Type: Report from Study
  Country: BR (occurrence: BR)
  Receive Date: 20230317
  Receipt Date: 20230323
  Transmission Date: 20230417
  Serious: Yes (Other)
  Sender: FDA-Public Use
  Company Number: BR-002147023-NVSC2023BR058000

PATIENT
  Sex: Female

DRUGS (1)
  1. ENTRESTO [Suspect]
     Active Substance: SACUBITRIL\VALSARTAN
     Indication: Congestive cardiomyopathy
     Dosage: UNK (97/103) (STARTED MORE THAN 5 YEARS AGO)
     Route: 065

REACTIONS (6)
  - Breast cancer [Recovered/Resolved with Sequelae]
  - Cardiomyopathy [Unknown]
  - Condition aggravated [Unknown]
  - Chronic obstructive pulmonary disease [Not Recovered/Not Resolved]
  - Dyspnoea exertional [Unknown]
  - Product use in unapproved indication [Unknown]
